FAERS Safety Report 25958478 (Version 1)
Quarter: 2025Q4

REPORT INFORMATION
  Report Type: Spontaneous
  Country: US (occurrence: US)
  Receive Date: 20251024
  Receipt Date: 20251024
  Transmission Date: 20260118
  Serious: Yes (Hospitalization)
  Sender: INTRABIO
  Company Number: US-IBO-202500215

PATIENT
  Age: 41 Year
  Sex: Female
  Weight: 61 kg

DRUGS (1)
  1. AQNEURSA [Suspect]
     Active Substance: LEVACETYLLEUCINE
     Indication: Product used for unknown indication
     Dosage: AQNEURSA 1 GRAM SACHET??TAKE 2 PACKETS IN THE MORNING, 1 PACKET IN THE AFTERNOON, AND 1 PACKET IN TH
     Route: 065
     Dates: start: 20250312

REACTIONS (3)
  - Fall [Recovering/Resolving]
  - Haemorrhage [Recovering/Resolving]
  - Head injury [Recovering/Resolving]

NARRATIVE: CASE EVENT DATE: 20250101
